FAERS Safety Report 4478924-9 (Version None)
Quarter: 2004Q4

REPORT INFORMATION
  Report Type: 
  Country: None (occurrence: None)
  Receive Date: 20041014
  Receipt Date: 20041001
  Transmission Date: 20050328
  Serious: Yes (Life-Threatening, Hospitalization, Other)
  Sender: FDA-Public Use
  Company Number: 2004074196

PATIENT
  Sex: Male

DRUGS (2)
  1. VFEND [Suspect]
     Indication: BRONCHOPULMONARY ASPERGILLOSIS
     Dosage: 400 MG (200 MG, 2 IN 1 D), ORAL
     Route: 048
  2. GEMTUZUMAB OZOGAMICIN (GENTUZUMAB OZOGAMICIN) [Suspect]
     Indication: ACUTE MYELOID LEUKAEMIA

REACTIONS (1)
  - VENOOCCLUSIVE DISEASE [None]
